FAERS Safety Report 10208629 (Version 1)
Quarter: 2014Q2

REPORT INFORMATION
  Report Type: Spontaneous
  Country: US (occurrence: US)
  Receive Date: 20140530
  Receipt Date: 20140530
  Transmission Date: 20141212
  Serious: No
  Sender: FDA-Public Use
  Company Number: US-009507513-1403USA003385

PATIENT
  Sex: Male
  Weight: 81.18 kg

DRUGS (1)
  1. MIRALAX [Suspect]
     Indication: PRODUCT USED FOR UNKNOWN INDICATION
     Dosage: 17 G, QD
     Route: 048

REACTIONS (3)
  - Incorrect drug administration duration [Unknown]
  - Product odour abnormal [Unknown]
  - Product taste abnormal [Unknown]
